FAERS Safety Report 10658331 (Version 1)
Quarter: 2014Q4

REPORT INFORMATION
  Report Type: Spontaneous
  Country: US (occurrence: None)
  Receive Date: 20141205
  Receipt Date: 20141205
  Transmission Date: 20150529
  Serious: Yes (Hospitalization)
  Sender: FDA-Public Use
  Company Number: USA-2014100853

PATIENT
  Age: 76 Year
  Sex: Male

DRUGS (6)
  1. LEVOTHYROXINE (LEVOTHYROXINE) (UNKNOWN) [Concomitant]
  2. ATENOLOL (ATENOLOL) (UNKNOWN) [Concomitant]
  3. POMALYST [Suspect]
     Active Substance: POMALIDOMIDE
     Indication: PLASMA CELL MYELOMA
     Dosage: 3 MG,  21 IN 28 D, PO
     Route: 048
     Dates: start: 20130812, end: 20140915
  4. ASPRIN [Concomitant]
     Active Substance: ASPIRIN
  5. DEXAMETHASONE (DEXAMETHASONE) (UNKNOWN) [Concomitant]
     Active Substance: DEXAMETHASONE
  6. AMLODIPINE (AMLODIPINE) (UNKNOWN) [Concomitant]

REACTIONS (2)
  - Liver function test abnormal [None]
  - Pulmonary sepsis [None]

NARRATIVE: CASE EVENT DATE: 20140801
